FAERS Safety Report 18795432 (Version 2)
Quarter: 2021Q2

REPORT INFORMATION
  Report Type: Spontaneous
  Country: DE (occurrence: DE)
  Receive Date: 20210127
  Receipt Date: 20210510
  Transmission Date: 20210717
  Serious: Yes (Disabling, Other)
  Sender: FDA-Public Use
  Company Number: DE-BAUSCH-BL-2021-002104

PATIENT
  Age: 83 Year
  Sex: Female

DRUGS (1)
  1. LATANOPROST. [Suspect]
     Active Substance: LATANOPROST
     Indication: GLAUCOMA
     Route: 047
     Dates: start: 2007, end: 2018

REACTIONS (2)
  - Corneal degeneration [Not Recovered/Not Resolved]
  - Adverse reaction [Unknown]
